FAERS Safety Report 9464112 (Version 2)
Quarter: 2014Q2

REPORT INFORMATION
  Report Type: Spontaneous
  Country: GB (occurrence: GB)
  Receive Date: 20130819
  Receipt Date: 20140402
  Transmission Date: 20141212
  Serious: Yes (Death)
  Sender: FDA-Public Use
  Company Number: GB-JNJFOC-20130807860

PATIENT
  Age: 58 Year
  Sex: Male
  Weight: 80 kg

DRUGS (5)
  1. XARELTO [Suspect]
     Indication: PRODUCT USED FOR UNKNOWN INDICATION
     Route: 048
     Dates: start: 20130420, end: 20130719
  2. PARACETAMOL [Concomitant]
     Indication: PAIN
     Route: 048
     Dates: start: 20130620
  3. GLICLAZIDE [Concomitant]
     Route: 065
     Dates: start: 20130103
  4. TRAMADOL [Concomitant]
     Indication: PAIN
     Route: 048
     Dates: start: 20130614
  5. ORAMORPH [Concomitant]
     Route: 065
     Dates: start: 20130118

REACTIONS (7)
  - Circulatory collapse [Fatal]
  - Cyanosis [Fatal]
  - Dyspnoea [Fatal]
  - Pallor [Fatal]
  - Respiratory distress [Fatal]
  - Tachypnoea [Fatal]
  - Wheezing [Fatal]
